FAERS Safety Report 9419555 (Version 1)
Quarter: 2013Q3

REPORT INFORMATION
  Report Type: Spontaneous
  Country: US (occurrence: US)
  Receive Date: 20130725
  Receipt Date: 20130725
  Transmission Date: 20140515
  Serious: No
  Sender: FDA-Public Use
  Company Number: US-BAXTER-2013BAX022969

PATIENT
  Sex: Female
  Weight: 67 kg

DRUGS (1)
  1. POTASSIUM CHLORIDE IN SODIUM CHLORIDE INJECTION, USP [Suspect]
     Indication: PRODUCT USED FOR UNKNOWN INDICATION
     Route: 042

REACTIONS (3)
  - Infusion site pain [Unknown]
  - Vein disorder [Unknown]
  - Discomfort [Unknown]
